FAERS Safety Report 16794608 (Version 1)
Quarter: 2019Q3

REPORT INFORMATION
  Report Type: Spontaneous
  Country: US (occurrence: US)
  Receive Date: 20190720
  Receipt Date: 20190720
  Transmission Date: 20191005
  Serious: No
  Sender: FDA-Public Use
  Company Number: None

PATIENT
  Age: 70 Year
  Sex: Male

DRUGS (1)
  1. XALKORI [Suspect]
     Active Substance: CRIZOTINIB
     Indication: OSTEOPOROSIS
     Dates: start: 201805

REACTIONS (2)
  - Nausea [None]
  - Dizziness [None]

NARRATIVE: CASE EVENT DATE: 20190720
